FAERS Safety Report 5286168-6 (Version None)
Quarter: 2007Q2

REPORT INFORMATION
  Report Type: 
  Country: None (occurrence: None)
  Receive Date: 20070404
  Receipt Date: 20070403
  Transmission Date: 20071010
  Serious: Yes (Death, Hospitalization)
  Sender: FDA-Public Use
  Company Number: ES-BRISTOL-MYERS SQUIBB COMPANY-13718986

PATIENT
  Age: 70 Year
  Sex: Male

DRUGS (10)
  1. CISPLATIN [Suspect]
     Indication: SMALL CELL LUNG CANCER STAGE UNSPECIFIED
     Route: 042
     Dates: start: 20060721, end: 20061024
  2. IRINOTECAN HCL [Suspect]
     Indication: SMALL CELL LUNG CANCER STAGE UNSPECIFIED
     Route: 042
     Dates: start: 20060721, end: 20061031
  3. PARIET [Concomitant]
     Route: 048
     Dates: start: 20060720, end: 20061206
  4. OMNIC [Concomitant]
     Route: 048
     Dates: end: 20061206
  5. GABAPENTIN [Concomitant]
     Route: 048
     Dates: start: 20060101, end: 20061206
  6. MORPHINE [Concomitant]
     Route: 048
     Dates: start: 20060809, end: 20061206
  7. ORFIDAL [Concomitant]
     Route: 048
     Dates: start: 20060720, end: 20061206
  8. ENANTYUM [Concomitant]
     Route: 048
     Dates: start: 20060909, end: 20061206
  9. METRONIDAZOLE [Concomitant]
     Route: 048
     Dates: start: 20060901, end: 20061206
  10. IBUPROFEN [Concomitant]
     Route: 048
     Dates: start: 20060809, end: 20061206

REACTIONS (4)
  - DIARRHOEA [None]
  - MALIGNANT NEOPLASM PROGRESSION [None]
  - NEUTROPENIA [None]
  - PHARYNGOLARYNGEAL PAIN [None]
